FAERS Safety Report 8416332-6 (Version None)
Quarter: 2012Q2

REPORT INFORMATION
  Report Type: 
  Country: None (occurrence: None)
  Receive Date: 20120606
  Receipt Date: 20120525
  Transmission Date: 20120825
  Serious: Yes (Other)
  Sender: FDA-Public Use
  Company Number: US-ENDO PHARMACEUTICALS INC.-OPIR20120099

PATIENT
  Sex: Male

DRUGS (2)
  1. OPANA [Suspect]
     Indication: PAIN
     Dosage: 5 MG
     Route: 048
  2. OPANA [Suspect]
     Route: 048

REACTIONS (2)
  - WITHDRAWAL SYNDROME [None]
  - DRUG ABUSE [None]
